FAERS Safety Report 8824077 (Version 1)
Quarter: 2012Q4

REPORT INFORMATION
  Report Type: 
  Country: US (occurrence: US)
  Receive Date: 20121003
  Receipt Date: 20121003
  Transmission Date: 20130627
  Serious: Yes (Other)
  Sender: FDA-Public Use
  Company Number: US-009507513-1210USA000883

PATIENT
  Age: 59 Year
  Sex: Male

DRUGS (1)
  1. JANUMET [Suspect]
     Dosage: 2 DF, qd

REACTIONS (3)
  - Somnolence [Unknown]
  - Asthenia [Unknown]
  - Dizziness [Unknown]
